FAERS Safety Report 5245786-1 (Version None)
Quarter: 2007Q1

REPORT INFORMATION
  Report Type: 
  Country: None (occurrence: None)
  Receive Date: 20070223
  Receipt Date: 20070213
  Transmission Date: 20070707
  Serious: Yes (Hospitalization, Other)
  Sender: FDA-Public Use
  Company Number: US-PFIZER INC-2007013165

PATIENT
  Sex: Female
  Weight: 61.2 kg

DRUGS (4)
  1. CELEBREX [Suspect]
     Indication: NECK PAIN
     Dates: start: 20020130, end: 20020501
  2. CELEBREX [Suspect]
     Indication: BACK PAIN
  3. BEXTRA [Suspect]
     Indication: NECK PAIN
     Dates: start: 20020401
  4. BEXTRA [Suspect]
     Indication: BACK PAIN

REACTIONS (1)
  - CEREBROVASCULAR ACCIDENT [None]
